FAERS Safety Report 9490105 (Version 6)
Quarter: 2014Q1

REPORT INFORMATION
  Report Type: Spontaneous
  Country: US (occurrence: US)
  Receive Date: 20130830
  Receipt Date: 20140304
  Transmission Date: 20141002
  Serious: Yes (Other)
  Sender: FDA-Public Use
  Company Number: US-JNJFOC-20120402950

PATIENT
  Age: 71 Year
  Sex: Female
  Weight: 61.24 kg

DRUGS (16)
  1. TYLENOL [Suspect]
     Route: 065
  2. TYLENOL [Suspect]
     Indication: PAIN
     Route: 065
  3. IBUPROFEN [Suspect]
     Route: 065
  4. IBUPROFEN [Suspect]
     Indication: ARTHROPATHY
     Route: 065
  5. LYRICA [Interacting]
     Indication: NEUROPATHY PERIPHERAL
     Route: 048
  6. LYRICA [Interacting]
     Indication: NEUROPATHY PERIPHERAL
     Route: 048
     Dates: start: 2012
  7. LYRICA [Interacting]
     Indication: NEUROPATHY PERIPHERAL
     Route: 048
     Dates: start: 201111
  8. LYRICA [Interacting]
     Indication: NEUROPATHY PERIPHERAL
     Route: 048
  9. LYRICA [Interacting]
     Indication: NEUROPATHY PERIPHERAL
     Route: 048
     Dates: start: 20111101
  10. LYRICA [Interacting]
     Indication: NEUROPATHY PERIPHERAL
     Route: 048
  11. GABAPENTIN [Interacting]
     Indication: NEUROPATHY PERIPHERAL
     Route: 048
     Dates: start: 20130802, end: 20130817
  12. CYMBALTA [Interacting]
     Indication: PRODUCT USED FOR UNKNOWN INDICATION
     Route: 065
  13. SYNTHROID [Suspect]
     Indication: HYPOTHYROIDISM
     Route: 065
  14. SYNTHROID [Suspect]
     Indication: HYPOTHYROIDISM
     Route: 065
  15. SYNTHROID [Suspect]
     Indication: HYPOTHYROIDISM
     Route: 065
  16. AMITRIPTYLINE [Suspect]
     Indication: PRODUCT USED FOR UNKNOWN INDICATION
     Route: 065

REACTIONS (25)
  - Nervous system disorder [Not Recovered/Not Resolved]
  - Arthropathy [Unknown]
  - Feeling abnormal [Unknown]
  - Shoulder operation [Unknown]
  - Disturbance in attention [Unknown]
  - Malaise [Unknown]
  - Gait disturbance [Not Recovered/Not Resolved]
  - Drug intolerance [Unknown]
  - Therapeutic response unexpected [Unknown]
  - Sleep apnoea syndrome [Unknown]
  - Pain in extremity [Unknown]
  - Headache [Unknown]
  - Fatigue [Not Recovered/Not Resolved]
  - Musculoskeletal stiffness [Recovering/Resolving]
  - Dyspnoea [Unknown]
  - Pain [Unknown]
  - Weight increased [Unknown]
  - Asthenia [Unknown]
  - Drug interaction [Unknown]
  - Paraesthesia [Unknown]
  - Insomnia [Not Recovered/Not Resolved]
  - Weight decreased [Unknown]
  - Pain in extremity [Not Recovered/Not Resolved]
  - Nausea [Unknown]
  - Drug ineffective [Unknown]
